FAERS Safety Report 7277236-8 (Version None)
Quarter: 2011Q1

REPORT INFORMATION
  Report Type: 
  Country: None (occurrence: None)
  Receive Date: 20110202
  Receipt Date: 20110202
  Transmission Date: 20110831
  Serious: Yes (Other)
  Sender: FDA-Public Use
  Company Number: None

PATIENT
  Sex: Female
  Weight: 65.318 kg

DRUGS (6)
  1. TAXOTERE [Suspect]
     Indication: BREAST CANCER
     Dosage: 100MG CYCLIC IV
     Route: 042
     Dates: start: 20101216, end: 20101216
  2. TAXOTERE [Suspect]
     Indication: PROGESTERONE RECEPTOR ASSAY POSITIVE
     Dosage: 100MG CYCLIC IV
     Route: 042
     Dates: start: 20101216, end: 20101216
  3. TAXOTERE [Suspect]
     Indication: OESTROGEN RECEPTOR ASSAY POSITIVE
     Dosage: 100MG CYCLIC IV
     Route: 042
     Dates: start: 20101216, end: 20101216
  4. CARBOPLATIN [Concomitant]
  5. HERCEPTIN [Concomitant]
  6. TAXOTERE [Suspect]
     Dosage: 20 MG/2ML

REACTIONS (12)
  - VAGINAL INFLAMMATION [None]
  - WEIGHT DECREASED [None]
  - APHAGIA [None]
  - RASH [None]
  - SKIN EXFOLIATION [None]
  - STOMATITIS [None]
  - VASCULITIS [None]
  - ECCHYMOSIS [None]
  - ORAL CANDIDIASIS [None]
  - EPISTAXIS [None]
  - BLISTER [None]
  - PRURITUS [None]
